FAERS Safety Report 19122974 (Version 2)
Quarter: 2022Q1

REPORT INFORMATION
  Report Type: Spontaneous
  Country: CA (occurrence: CA)
  Receive Date: 20210412
  Receipt Date: 20220322
  Transmission Date: 20220423
  Serious: Yes (Hospitalization, Other)
  Sender: FDA-Public Use
  Company Number: CA-MUNDIPHARMA RESEARCH LIMITED-CAN-2020-0011398

PATIENT
  Sex: Female

DRUGS (10)
  1. HYDROMORPHONE HYDROCHLORIDE [Suspect]
     Active Substance: HYDROMORPHONE HYDROCHLORIDE
     Indication: Drug abuse
     Dosage: UNK
     Route: 065
  2. COCAINE [Suspect]
     Active Substance: COCAINE
     Indication: Drug abuse
     Dosage: UNK
     Route: 065
  3. KETAMINE [Suspect]
     Active Substance: KETAMINE
     Indication: Drug abuse
     Dosage: UNK
     Route: 065
  4. METHAMPHETAMINE [Suspect]
     Active Substance: METHAMPHETAMINE
     Indication: Drug abuse
     Dosage: UNK
     Route: 065
  5. MIDOMAFETAMINE [Suspect]
     Active Substance: MIDOMAFETAMINE
     Indication: Drug abuse
     Dosage: UNK
     Route: 065
  6. METHAMPHETAMINE [Suspect]
     Active Substance: METHAMPHETAMINE
     Indication: Drug abuse
     Dosage: UNK
     Route: 065
  7. XYREM [Suspect]
     Active Substance: SODIUM OXYBATE
     Indication: Drug abuse
     Dosage: UNK
     Route: 065
  8. XYREM [Suspect]
     Active Substance: SODIUM OXYBATE
     Dosage: UNK
     Route: 048
  9. OXYBATE [Suspect]
     Active Substance: OXYBATE
     Indication: Drug abuse
     Dosage: UNK
     Route: 065
  10. HYDROMORPHONE [Suspect]
     Active Substance: HYDROMORPHONE
     Indication: Drug abuse
     Dosage: UNK
     Route: 042

REACTIONS (7)
  - Cardiac arrest [Recovered/Resolved]
  - Endocarditis [Recovered/Resolved]
  - Gait disturbance [Recovered/Resolved]
  - Substance abuse [Recovered/Resolved]
  - Substance dependence [Recovered/Resolved]
  - Drug withdrawal syndrome [Recovered/Resolved]
  - Drug abuse [Recovered/Resolved]
